FAERS Safety Report 9031335 (Version 1)
Quarter: 2013Q1

REPORT INFORMATION
  Report Type: Report from Study
  Country: US (occurrence: US)
  Receive Date: 20130124
  Receipt Date: 20130124
  Transmission Date: 20140127
  Serious: No
  Sender: FDA-Public Use
  Company Number: US-VERTEX PHARMACEUTICALS INC.-2013-001038

PATIENT
  Sex: Male
  Weight: 100 kg

DRUGS (18)
  1. VX-950 (TELAPREVIR) [Suspect]
     Indication: HEPATITIS C
     Dosage: 750 MG, TID
     Route: 048
  2. PEGASYS [Suspect]
     Indication: HEPATITIS C
     Dosage: 180 ?G, UNK
  3. RIBAVIRIN [Suspect]
     Indication: HEPATITIS C
  4. HUMALOG MIX [Concomitant]
     Dosage: 50/50
  5. LASIX                              /00032601/ [Concomitant]
  6. BENTYL [Concomitant]
  7. LYRICA [Concomitant]
  8. K-DUR [Concomitant]
  9. LANTUS [Concomitant]
  10. URSODIOL [Concomitant]
  11. NEXIUM                             /01479302/ [Concomitant]
  12. MULTIVITAMIN                       /00097801/ [Concomitant]
  13. VITAMIN B12 LOGES [Concomitant]
  14. FERROUS SULFATE [Concomitant]
  15. IMODIUM [Concomitant]
  16. NEUPOGEN [Concomitant]
     Dosage: 480/0.8
  17. CYCLOSPORINE [Concomitant]
  18. PROCRIT                            /00928302/ [Concomitant]
     Dosage: 40000/ML

REACTIONS (5)
  - Bone pain [Unknown]
  - Fatigue [Unknown]
  - Rash [Unknown]
  - Red blood cell count decreased [Unknown]
  - Diarrhoea [Unknown]
